FAERS Safety Report 7964719-8 (Version None)
Quarter: 2011Q4

REPORT INFORMATION
  Report Type: 
  Country: None (occurrence: None)
  Receive Date: 20111206
  Receipt Date: 20111206
  Transmission Date: 20120403
  Serious: Yes (Hospitalization)
  Sender: FDA-Public Use
  Company Number: None

PATIENT
  Sex: Female
  Weight: 97 kg

DRUGS (2)
  1. TAXOTERE [Suspect]
     Dosage: 119 MG
     Dates: end: 20111121
  2. CARBOPLATIN [Suspect]
     Dosage: 382 MG
     Dates: end: 20111121

REACTIONS (4)
  - UPPER RESPIRATORY TRACT INFECTION [None]
  - FEBRILE NEUTROPENIA [None]
  - CONFUSIONAL STATE [None]
  - COUGH [None]
